FAERS Safety Report 17118059 (Version 1)
Quarter: 2019Q4

REPORT INFORMATION
  Report Type: Spontaneous
  Country: US (occurrence: US)
  Receive Date: 20191205
  Receipt Date: 20191205
  Transmission Date: 20200122
  Serious: No
  Sender: FDA-Public Use
  Company Number: US-SA-2019SA332084

PATIENT
  Age: 63 Year
  Sex: Male

DRUGS (1)
  1. TOUJEO [Suspect]
     Active Substance: INSULIN GLARGINE
     Indication: DIABETES MELLITUS
     Dosage: 35 U, QD
     Route: 065

REACTIONS (6)
  - Limb injury [Unknown]
  - Glycosylated haemoglobin decreased [Unknown]
  - Toe amputation [Unknown]
  - Fall [Unknown]
  - Weight decreased [Unknown]
  - Wound complication [Unknown]
